FAERS Safety Report 17039964 (Version 1)
Quarter: 2019Q4

REPORT INFORMATION
  Report Type: Spontaneous
  Country: GB (occurrence: GB)
  Receive Date: 20191116
  Receipt Date: 20191116
  Transmission Date: 20200122
  Serious: Yes (Disabling, Other)
  Sender: FDA-Public Use
  Company Number: GB-ACCORD-161327

PATIENT
  Age: 41 Year
  Sex: Female
  Weight: 65 kg

DRUGS (1)
  1. AMITRIPTYLINE [Suspect]
     Active Substance: AMITRIPTYLINE
     Indication: MIGRAINE
     Route: 048
     Dates: start: 20180301, end: 20180718

REACTIONS (7)
  - Feeling abnormal [Unknown]
  - Vertigo [Unknown]
  - Dry mouth [Recovering/Resolving]
  - Dizziness [Recovering/Resolving]
  - Hyporeflexia [Recovering/Resolving]
  - Presyncope [Recovering/Resolving]
  - Fatigue [Recovering/Resolving]
